FAERS Safety Report 10532750 (Version 2)
Quarter: 2014Q4

REPORT INFORMATION
  Report Type: Report from Study
  Country: PL (occurrence: PL)
  Receive Date: 20141021
  Receipt Date: 20141021
  Transmission Date: 20150529
  Serious: Yes (Other)
  Sender: FDA-Public Use
  Company Number: PL-ROCHE-1465527

PATIENT
  Age: 75 Year
  Sex: Male
  Weight: 85 kg

DRUGS (2)
  1. RANIBIZUMAB [Suspect]
     Active Substance: RANIBIZUMAB
     Indication: AGE-RELATED MACULAR DEGENERATION
     Route: 050
     Dates: start: 20131212
  2. RANIBIZUMAB [Suspect]
     Active Substance: RANIBIZUMAB
     Route: 050
     Dates: start: 20140819, end: 20140819

REACTIONS (2)
  - Posterior capsule opacification [Not Recovered/Not Resolved]
  - Cataract subcapsular [Not Recovered/Not Resolved]

NARRATIVE: CASE EVENT DATE: 20140918
